FAERS Safety Report 5534915-8 (Version None)
Quarter: 2007Q4

REPORT INFORMATION
  Report Type: 
  Country: None (occurrence: None)
  Receive Date: 20071205
  Receipt Date: 20071203
  Transmission Date: 20080405
  Serious: No
  Sender: FDA-Public Use
  Company Number: US-BOEHRINGER INGELHEIM PHARMACEUTICALS, INC.-2007-BP-25526BP

PATIENT
  Age: 69 Year
  Sex: Male

DRUGS (11)
  1. SPIRIVA [Suspect]
     Indication: CHRONIC OBSTRUCTIVE PULMONARY DISEASE
     Route: 055
     Dates: start: 20070801
  2. ADVAIR DISKUS 100/50 [Concomitant]
  3. ALBUTEROL [Concomitant]
  4. DICLOFENAC [Concomitant]
  5. LASIX [Concomitant]
  6. GABAPENTIN [Concomitant]
  7. POTASSIUM CHLORIDE [Concomitant]
  8. MICARDIS [Concomitant]
  9. SIMVASTATIN [Concomitant]
  10. COUMADIN [Concomitant]
  11. UROXATRAL [Concomitant]

REACTIONS (1)
  - DRUG INEFFECTIVE [None]
